FAERS Safety Report 7747701-5 (Version None)
Quarter: 2011Q3

REPORT INFORMATION
  Report Type: 
  Country: None (occurrence: None)
  Receive Date: 20110913
  Receipt Date: 20110902
  Transmission Date: 20111222
  Serious: Yes (Hospitalization)
  Sender: FDA-Public Use
  Company Number: GB-ELI_LILLY_AND_COMPANY-GB201109001551

PATIENT

DRUGS (1)
  1. HUMALOG [Suspect]

REACTIONS (2)
  - DIABETIC KETOACIDOSIS [None]
  - HYPERGLYCAEMIA [None]
